FAERS Safety Report 5955305-X (Version None)
Quarter: 2008Q4

REPORT INFORMATION
  Report Type: 
  Country: None (occurrence: None)
  Receive Date: 20081117
  Receipt Date: 20081105
  Transmission Date: 20090506
  Serious: Yes (Hospitalization)
  Sender: FDA-Public Use
  Company Number: US-MERCK-0712USA09245

PATIENT
  Age: 59 Year
  Sex: Female
  Weight: 67 kg

DRUGS (18)
  1. FOSAMAX [Suspect]
     Indication: OSTEOPENIA
     Route: 048
     Dates: start: 19980901
  2. FOSAMAX [Suspect]
     Route: 048
     Dates: start: 20010301, end: 20060623
  3. FOSAMAX [Suspect]
     Indication: OSTEOPOROSIS
     Route: 048
     Dates: start: 19980901
  4. FOSAMAX [Suspect]
     Route: 048
     Dates: start: 20010301, end: 20060623
  5. VIOXX [Concomitant]
     Indication: OSTEOARTHRITIS
     Route: 048
  6. PRILOSEC [Concomitant]
     Indication: GASTROOESOPHAGEAL REFLUX DISEASE
     Route: 048
  7. INDERAL [Concomitant]
     Indication: MITRAL VALVE PROLAPSE
     Route: 065
  8. INDERAL [Concomitant]
     Indication: MIGRAINE
     Route: 065
  9. ZOLOFT [Concomitant]
     Indication: DEPRESSION
     Route: 065
  10. ZOCOR [Concomitant]
     Indication: BLOOD CHOLESTEROL INCREASED
     Route: 048
  11. ZYRTEC [Concomitant]
     Indication: HYPERSENSITIVITY
     Route: 065
  12. SINGULAIR [Concomitant]
     Indication: HYPERSENSITIVITY
     Route: 048
  13. FLEXERIL [Concomitant]
     Indication: MUSCLE SPASMS
     Route: 048
  14. AMBIEN [Concomitant]
     Indication: SLEEP DISORDER
     Route: 065
  15. IMITREX [Concomitant]
     Indication: MIGRAINE
     Route: 030
  16. BUTALBITAL AND ASPIRIN AND CAFFEINE [Concomitant]
     Indication: MIGRAINE
     Route: 065
  17. OS-CAL + D [Concomitant]
     Route: 065
  18. CENTRUM SILVER [Concomitant]
     Route: 065

REACTIONS (12)
  - BLOOD TRIGLYCERIDES INCREASED [None]
  - CATARACT [None]
  - CELLULITIS [None]
  - FIBULA FRACTURE [None]
  - INTRADUCTAL PAPILLOMA OF BREAST [None]
  - LUDWIG ANGINA [None]
  - OSTEOMYELITIS [None]
  - OSTEONECROSIS [None]
  - OSTEOSCLEROSIS [None]
  - TENOSYNOVITIS [None]
  - TOOTH ABSCESS [None]
  - TOOTH FRACTURE [None]
